FAERS Safety Report 8720621 (Version 2)
Quarter: 2015Q2

REPORT INFORMATION
  Report Type: Report from Study
  Country: US (occurrence: US)
  Receive Date: 20120813
  Receipt Date: 20150625
  Transmission Date: 20150821
  Serious: Yes (Hospitalization)
  Sender: FDA-Public Use
  Company Number: US-ROCHE-1099281

PATIENT
  Sex: Female

DRUGS (8)
  1. HEPARIN [Concomitant]
     Active Substance: HEPARIN SODIUM
     Route: 040
  2. ACTIVASE [Suspect]
     Active Substance: ALTEPLASE
     Indication: MYOCARDIAL INFARCTION
     Route: 040
  3. ACTIVASE [Suspect]
     Active Substance: ALTEPLASE
     Route: 040
  4. COMPAZINE [Concomitant]
     Active Substance: PROCHLORPERAZINE MALEATE
     Route: 042
  5. HEPARIN [Concomitant]
     Active Substance: HEPARIN SODIUM
     Route: 040
  6. ASA [Concomitant]
     Active Substance: ASPIRIN
     Dosage: ONCE IN PM
     Route: 048
  7. ACTIVASE [Suspect]
     Active Substance: ALTEPLASE
     Route: 040
  8. NITROGLYCERIN. [Concomitant]
     Active Substance: NITROGLYCERIN
     Route: 042

REACTIONS (10)
  - Limb discomfort [Unknown]
  - Hyperhidrosis [Unknown]
  - Dyspnoea [Unknown]
  - Back pain [Unknown]
  - Discomfort [Unknown]
  - Pain [Unknown]
  - Pain in extremity [Unknown]
  - Skin discolouration [Unknown]
  - Nasopharyngitis [Unknown]
  - Tenderness [Unknown]
